FAERS Safety Report 19243775 (Version 1)
Quarter: 2021Q2

REPORT INFORMATION
  Report Type: Spontaneous
  Country: US (occurrence: US)
  Receive Date: 20210511
  Receipt Date: 20210511
  Transmission Date: 20210717
  Serious: No
  Sender: FDA-Public Use
  Company Number: US-GILEAD-2021-0529935

PATIENT
  Age: 49 Year
  Sex: Female

DRUGS (7)
  1. ZOLPIMIST [Concomitant]
     Active Substance: ZOLPIDEM TARTRATE
  2. XANAX [Concomitant]
     Active Substance: ALPRAZOLAM
  3. TRAZODONE HYDROCHLORIDE. [Concomitant]
     Active Substance: TRAZODONE HYDROCHLORIDE
  4. VOSEVI [Suspect]
     Active Substance: SOFOSBUVIR\VELPATASVIR\VOXILAPREVIR
     Indication: CHRONIC HEPATITIS C
     Dosage: TAKE 1 TABLET BY MOUTH DAILY
     Route: 048
     Dates: start: 202104
  5. LEVOTHYROXINE SODIUM. [Concomitant]
     Active Substance: LEVOTHYROXINE SODIUM
  6. ARIPIPRAZOLE. [Concomitant]
     Active Substance: ARIPIPRAZOLE
  7. AMBIEN [Concomitant]
     Active Substance: ZOLPIDEM TARTRATE

REACTIONS (1)
  - Hostility [Unknown]
